FAERS Safety Report 8525174-2 (Version None)
Quarter: 2012Q3

REPORT INFORMATION
  Report Type: 
  Country: None (occurrence: None)
  Receive Date: 20120720
  Receipt Date: 20120713
  Transmission Date: 20120928
  Serious: Yes (Other)
  Sender: FDA-Public Use
  Company Number: PHEH2012US013832

PATIENT
  Sex: Male

DRUGS (4)
  1. TEGRETOL [Suspect]
     Dosage: 2 DF, QD
     Route: 048
  2. METFORMIN HYDROCHLORIDE [Concomitant]
  3. TOPAMAX [Concomitant]
  4. DEPAKOTE [Concomitant]

REACTIONS (1)
  - CONVULSION [None]
